FAERS Safety Report 9064430 (Version 1)
Quarter: 2013Q1

REPORT INFORMATION
  Report Type: Spontaneous
  Country: US (occurrence: US)
  Receive Date: 20130213
  Receipt Date: 20130213
  Transmission Date: 20140127
  Serious: Yes (Other)
  Sender: FDA-Public Use
  Company Number: US-PFIZER INC-2013055377

PATIENT
  Sex: Female
  Weight: 47.62 kg

DRUGS (1)
  1. LYRICA [Suspect]
     Indication: PAIN
     Dosage: 800 MG, 3X/DAY

REACTIONS (6)
  - Platelet disorder [Unknown]
  - Incorrect dose administered [Unknown]
  - Hair growth abnormal [Unknown]
  - Dry mouth [Unknown]
  - Gastrointestinal pain [Unknown]
  - Vision blurred [Unknown]
